FAERS Safety Report 6557629-4 (Version None)
Quarter: 2010Q1

REPORT INFORMATION
  Report Type: 
  Country: None (occurrence: None)
  Receive Date: 20100129
  Receipt Date: 20091006
  Transmission Date: 20100710
  Serious: No
  Sender: FDA-Public Use
  Company Number: A0810575A

PATIENT
  Age: 12 Year
  Sex: Female

DRUGS (5)
  1. FLOVENT [Suspect]
     Indication: BRONCHITIS
     Dosage: 1PUFF TWICE PER DAY
     Route: 055
     Dates: end: 20091004
  2. VENTOLIN [Suspect]
     Indication: BRONCHITIS
     Dosage: 1PUFF FOUR TIMES PER DAY
     Route: 055
     Dates: end: 20091003
  3. NASACORT [Concomitant]
  4. ALLEGRA [Concomitant]
  5. ANTIBIOTICS [Concomitant]

REACTIONS (4)
  - ANXIETY [None]
  - MENTAL IMPAIRMENT [None]
  - MOOD ALTERED [None]
  - RESTLESSNESS [None]
